FAERS Safety Report 25260099 (Version 1)
Quarter: 2025Q2

REPORT INFORMATION
  Report Type: Spontaneous
  Country: US (occurrence: None)
  Receive Date: 20250501
  Receipt Date: 20250501
  Transmission Date: 20250716
  Serious: No
  Sender: FDA-CTU
  Company Number: None

PATIENT
  Age: 58 Year
  Sex: Male
  Weight: 99 kg

DRUGS (1)
  1. XHANCE [Suspect]
     Active Substance: FLUTICASONE PROPIONATE
     Indication: Illness
     Dosage: FREQUENCY : DAILY;?
     Route: 055
     Dates: start: 20250409, end: 20250428

REACTIONS (3)
  - Joint stiffness [None]
  - Bone pain [None]
  - Movement disorder [None]
